FAERS Safety Report 6881429-9 (Version None)
Quarter: 2010Q3

REPORT INFORMATION
  Report Type: 
  Country: None (occurrence: None)
  Receive Date: 20100728
  Receipt Date: 20100728
  Transmission Date: 20110219
  Serious: Yes (Life-Threatening, Hospitalization, Disabling, Other)
  Sender: FDA-Public Use
  Company Number: None

PATIENT
  Age: 48 Year
  Sex: Male
  Weight: 106.5953 kg

DRUGS (2)
  1. SIMVASTATIN [Suspect]
     Indication: BLOOD CHOLESTEROL
     Dosage: 80MG NIGHTLY PO
     Route: 048
     Dates: start: 20091013, end: 20100313
  2. LOPID [Suspect]
     Dosage: 1200 MG DAILY PO
     Route: 048
     Dates: start: 20091013, end: 20100313

REACTIONS (1)
  - NO ADVERSE EVENT [None]
